FAERS Safety Report 5702628-5 (Version None)
Quarter: 2008Q2

REPORT INFORMATION
  Report Type: 
  Country: None (occurrence: None)
  Receive Date: 20080411
  Receipt Date: 20080102
  Transmission Date: 20081010
  Serious: Yes (Death, Hospitalization)
  Sender: FDA-Public Use
  Company Number: PHBS2007NO16297

PATIENT
  Age: 45 Year
  Sex: Male
  Weight: 94 kg

DRUGS (2)
  1. GLEEVEC [Suspect]
     Indication: CHRONIC MYELOID LEUKAEMIA
     Dosage: 600 MG/D
     Route: 048
     Dates: start: 20070810, end: 20070913
  2. ALLOPURINOL [Concomitant]
     Indication: GOUT
     Dosage: 300 MG/D
     Route: 048

REACTIONS (7)
  - ANTIBODY TEST POSITIVE [None]
  - ARTHRITIS [None]
  - BLOOD CALCIUM INCREASED [None]
  - HYPERCALCAEMIA [None]
  - MALIGNANT NEOPLASM PROGRESSION [None]
  - OEDEMA PERIPHERAL [None]
  - TENDERNESS [None]
